FAERS Safety Report 10301478 (Version 2)
Quarter: 2014Q3

REPORT INFORMATION
  Report Type: Spontaneous
  Country: US (occurrence: US)
  Receive Date: 20140714
  Receipt Date: 20140714
  Transmission Date: 20150326
  Serious: Yes (Disabling, Other)
  Sender: FDA-Public Use
  Company Number: PHEH2013US023575

PATIENT
  Age: 48 Year
  Sex: Female

DRUGS (13)
  1. LIDODERM [Concomitant]
     Active Substance: LIDOCAINE
     Dosage: UNK UKN, UNK
  2. VITAMIN D [Concomitant]
     Active Substance: CHOLECALCIFEROL
     Dosage: UNK UKN, QD
  3. MOTRIN [Concomitant]
     Active Substance: IBUPROFEN
     Dosage: UNK UKN, PRN
  4. TYLENOL [Concomitant]
     Active Substance: ACETAMINOPHEN
     Dosage: UNK UKN, PRN
     Route: 048
  5. ZITHROMAX [Concomitant]
     Active Substance: AZITHROMYCIN DIHYDRATE
     Dosage: UNK UKN, UNK
  6. RECLAST [Suspect]
     Active Substance: ZOLEDRONIC ACID
     Indication: OSTEOPOROSIS
     Dosage: 1 DF, UNK (1 DOSE)
     Route: 042
     Dates: start: 20130408
  7. MULTI-VIT [Concomitant]
     Active Substance: VITAMINS
     Dosage: UNK UKN, QD
  8. DICLOFENAC [Suspect]
     Active Substance: DICLOFENAC
     Indication: PAIN
     Dosage: UNK UKN, UNK
  9. ADVIL [Concomitant]
     Active Substance: IBUPROFEN
     Dosage: UNK UKN, PRN
  10. BONE UP [Concomitant]
     Dosage: 1 DF, DAILY MVI
     Route: 048
  11. PREDNISONE. [Concomitant]
     Active Substance: PREDNISONE
     Dosage: UNK UKN, UNK
  12. NEXIUM [Concomitant]
     Active Substance: ESOMEPRAZOLE MAGNESIUM
     Dosage: UNK UKN, UNK
  13. FLECTOR [Concomitant]
     Active Substance: DICLOFENAC EPOLAMINE
     Dosage: UNK UKN, UNK

REACTIONS (41)
  - Uterine leiomyoma [Unknown]
  - Vision blurred [Unknown]
  - Weight decreased [Unknown]
  - Myositis [Unknown]
  - Conjunctivitis [Unknown]
  - Rash [Unknown]
  - Hypokinesia [Unknown]
  - Gastrooesophageal reflux disease [Unknown]
  - Cough [Unknown]
  - Arthralgia [Unknown]
  - Adverse drug reaction [Unknown]
  - Intraocular pressure increased [Unknown]
  - Tendon disorder [Unknown]
  - Urticaria [Unknown]
  - Generalised oedema [Unknown]
  - Pallor [Unknown]
  - Chills [Unknown]
  - Pain [Recovering/Resolving]
  - Tendon injury [Unknown]
  - Fatigue [Unknown]
  - Palpitations [Unknown]
  - Gait disturbance [Unknown]
  - Weight increased [Unknown]
  - Intervertebral disc degeneration [Unknown]
  - Pelvic pain [Unknown]
  - Intervertebral disc disorder [Unknown]
  - Chest pain [Unknown]
  - Influenza like illness [Unknown]
  - Nausea [Recovered/Resolved]
  - Eye pain [Unknown]
  - Quality of life decreased [Unknown]
  - Exostosis [Unknown]
  - Flank pain [Unknown]
  - Back pain [Unknown]
  - Myalgia [Unknown]
  - Malaise [Recovering/Resolving]
  - Pain in extremity [Unknown]
  - Epistaxis [Unknown]
  - Wheezing [Unknown]
  - Pyrexia [Unknown]
  - Abdominal pain upper [Unknown]

NARRATIVE: CASE EVENT DATE: 20130409
